FAERS Safety Report 16275922 (Version 2)
Quarter: 2019Q2

REPORT INFORMATION
  Report Type: Report from Study
  Country: US (occurrence: US)
  Receive Date: 20190505
  Receipt Date: 20190627
  Transmission Date: 20190711
  Serious: No
  Sender: FDA-Public Use
  Company Number: PHEH2019US018545

PATIENT
  Sex: Female
  Weight: 54.43 kg

DRUGS (2)
  1. CLOBETASOL [Concomitant]
     Active Substance: CLOBETASOL
     Indication: PSORIASIS
     Dosage: 2 TIMES DAILY FOR 2 WEEKS
     Route: 061
     Dates: start: 201812, end: 201902
  2. COSENTYX [Suspect]
     Active Substance: SECUKINUMAB
     Indication: PSORIASIS
     Dosage: 300 MG, QMO
     Route: 058
     Dates: start: 201901, end: 201902

REACTIONS (1)
  - Maternal exposure during pregnancy [Unknown]
